FAERS Safety Report 9030349 (Version 2)
Quarter: 2013Q1

REPORT INFORMATION
  Report Type: Spontaneous
  Country: FR (occurrence: FR)
  Receive Date: 20130122
  Receipt Date: 20130326
  Transmission Date: 20140127
  Serious: Yes (Hospitalization)
  Sender: FDA-Public Use
  Company Number: FR-PFIZER INC-2013017205

PATIENT
  Age: 17 Year
  Sex: Female

DRUGS (4)
  1. MINIDRIL [Suspect]
     Indication: CONTRACEPTION
     Dosage: 1 DF, 1X/DAY
     Route: 048
     Dates: end: 201206
  2. ATENOLOL [Suspect]
     Indication: TACHYCARDIA
     Dosage: 25 MG, 1X/DAY
     Route: 048
  3. PROCORALAN [Suspect]
     Indication: TACHYCARDIA
     Dosage: 5 MG, 2X/DAY
     Route: 048
  4. IMIGRANE [Suspect]
     Indication: MIGRAINE
     Dosage: UNK
     Route: 048
     Dates: start: 2010, end: 201206

REACTIONS (1)
  - Bone infarction [Recovered/Resolved]
